FAERS Safety Report 4527148-5 (Version None)
Quarter: 2004Q4

REPORT INFORMATION
  Report Type: 
  Country: None (occurrence: None)
  Receive Date: 20041126
  Receipt Date: 20041020
  Transmission Date: 20050328
  Serious: Yes (Hospitalization)
  Sender: FDA-Public Use
  Company Number: 04P-163-0277985-00

PATIENT
  Sex: Male

DRUGS (17)
  1. DEPAKOTE ER [Suspect]
  2. DEPAKOTE DR (VALPROATE SEMISODIUM) [Suspect]
  3. HALOPERIDOL [Concomitant]
  4. FUROSEMIDE [Concomitant]
  5. IBUPROFEN [Concomitant]
  6. CALCITONIN-SALMON [Concomitant]
  7. LANSOPRAZOLE [Concomitant]
  8. GLUCOPHAGE [Concomitant]
  9. GEMFIBROZIL [Concomitant]
  10. BENZATROPINE MESILATE [Concomitant]
  11. FLUOXETINE HYDROCHLORIDE [Concomitant]
  12. PROPACET 100 [Concomitant]
  13. RISPERIDONE [Concomitant]
  14. DOCUSATE [Concomitant]
  15. NOVOLIN INSULIN [Concomitant]
  16. GLYBURIDE [Concomitant]
  17. CALCIUM [Concomitant]

REACTIONS (1)
  - COMA [None]
